FAERS Safety Report 5091378-7 (Version None)
Quarter: 2006Q3

REPORT INFORMATION
  Report Type: 
  Country: None (occurrence: None)
  Receive Date: 20060829
  Receipt Date: 20060814
  Transmission Date: 20061208
  Serious: Yes (Hospitalization)
  Sender: FDA-Public Use
  Company Number: US-KINGPHARMUSA00001-K200601062

PATIENT
  Age: 28 Year
  Sex: Male

DRUGS (2)
  1. METHIMAZOLE TABLETS, USP [Suspect]
     Indication: BASEDOW'S DISEASE
     Dosage: 10 MG, TID
     Route: 048
  2. PROPRANOLOL [Concomitant]
     Dosage: 40 MG, TID

REACTIONS (5)
  - BLOOD ALKALINE PHOSPHATASE INCREASED [None]
  - BLOOD BILIRUBIN INCREASED [None]
  - CHOLESTASIS [None]
  - JAUNDICE [None]
  - PRURITUS [None]
